FAERS Safety Report 6801295-7 (Version None)
Quarter: 2010Q2

REPORT INFORMATION
  Report Type: 
  Country: None (occurrence: None)
  Receive Date: 20100629
  Receipt Date: 20100616
  Transmission Date: 20101027
  Serious: Yes (Hospitalization)
  Sender: FDA-Public Use
  Company Number: US-SHIRE-ALL1-2010-03436

PATIENT

DRUGS (5)
  1. FOSRENOL [Suspect]
     Indication: HYPERPHOSPHATAEMIA
     Dosage: 2000 MG, TWO 1000 MG TABLETS 2X/DAY:BID
     Route: 048
     Dates: start: 20080101
  2. COREG [Concomitant]
     Indication: HYPERTENSION
     Dosage: 25 MG, 2X/DAY:BID
     Route: 048
     Dates: start: 20070101
  3. LANTUS                             /01483501/ [Concomitant]
     Indication: DIABETES MELLITUS
     Dosage: 60 IU, 2X/DAY:BID
     Route: 058
     Dates: start: 20070101
  4. NOVOLOG [Concomitant]
     Indication: DIABETES MELLITUS
     Dosage: UNK IU, SLIDING SCALE AS REQ'D
     Route: 058
  5. NEPHROVITE [Interacting]
     Indication: RENAL FAILURE CHRONIC
     Dosage: UNK, 1X/DAY:QD
     Route: 048
     Dates: start: 20070101

REACTIONS (7)
  - ANAEMIA [None]
  - BORDERLINE GLAUCOMA [None]
  - CONSTIPATION [None]
  - IMPAIRED HEALING [None]
  - SPLENECTOMY [None]
  - UNEVALUABLE EVENT [None]
  - WOUND [None]
